FAERS Safety Report 5926476-6 (Version None)
Quarter: 2008Q4

REPORT INFORMATION
  Report Type: 
  Country: None (occurrence: None)
  Receive Date: 20081022
  Receipt Date: 20081013
  Transmission Date: 20090506
  Serious: Yes (Other)
  Sender: FDA-Public Use
  Company Number: PHHY2008FR16585

PATIENT
  Sex: Male

DRUGS (5)
  1. LEPONEX [Suspect]
     Indication: SCHIZOPHRENIA
     Dosage: 12.5 MG, UNK
     Route: 048
     Dates: start: 20080709
  2. LEPONEX [Suspect]
     Dosage: 25 MG, UNK
     Dates: start: 20080710
  3. LEPONEX [Suspect]
     Dosage: 75 MG, UNK
     Dates: start: 20080712
  4. LEPONEX [Suspect]
     Dosage: 100 MG, UNK
     Dates: start: 20080721
  5. LEPONEX [Suspect]
     Dosage: 225MG/DAY

REACTIONS (2)
  - C-REACTIVE PROTEIN INCREASED [None]
  - WHITE BLOOD CELL COUNT INCREASED [None]
